FAERS Safety Report 4806119-5 (Version None)
Quarter: 2005Q4

REPORT INFORMATION
  Report Type: 
  Country: None (occurrence: None)
  Receive Date: 20051021
  Receipt Date: 20051007
  Transmission Date: 20060501
  Serious: Yes (Other)
  Sender: FDA-Public Use
  Company Number: ES-ROCHE-420368

PATIENT
  Age: 73 Year
  Sex: Male

DRUGS (2)
  1. MYCOPHENOLATE MOFETIL [Suspect]
     Route: 048
     Dates: start: 20050629, end: 20050629
  2. TACROLIMUS [Suspect]
     Route: 048
     Dates: start: 20050629

REACTIONS (3)
  - OBSTRUCTIVE UROPATHY [None]
  - RENAL ARTERY STENOSIS [None]
  - SEROMA [None]
